FAERS Safety Report 7385749-3 (Version None)
Quarter: 2011Q1

REPORT INFORMATION
  Report Type: 
  Country: None (occurrence: None)
  Receive Date: 20110331
  Receipt Date: 20110301
  Transmission Date: 20110831
  Serious: Yes (Hospitalization, Other)
  Sender: FDA-Public Use
  Company Number: US-BAYER-201042040NA

PATIENT
  Sex: Female
  Weight: 102.4 kg

DRUGS (2)
  1. UNCODEABLE ^UNCLASSIFIABLE^ [Concomitant]
     Dosage: 81 MG, UNK
     Route: 048
     Dates: start: 20090501
  2. YAZ [Suspect]
     Indication: MENORRHAGIA
     Dosage: UNK UNK, QD
     Route: 048
     Dates: start: 20061108, end: 20090719

REACTIONS (2)
  - PULMONARY EMBOLISM [None]
  - DEEP VEIN THROMBOSIS [None]
